FAERS Safety Report 23913026 (Version 2)
Quarter: 2025Q1

REPORT INFORMATION
  Report Type: Spontaneous
  Country: US (occurrence: US)
  Receive Date: 20240529
  Receipt Date: 20250108
  Transmission Date: 20250409
  Serious: Yes (Other)
  Sender: Kilitch Healthcare
  Company Number: US-KHC-000031

PATIENT
  Sex: Female

DRUGS (1)
  1. POLYVINYL ALCOHOL [Suspect]
     Active Substance: POLYVINYL ALCOHOL
     Indication: Dry eye
     Dosage: 2 DROPS IN EACH EYE TWICE A DAY, ONCE IN THE MORNING AND AGAIN IN THE EVENING
     Route: 065
     Dates: start: 202303, end: 202312

REACTIONS (3)
  - Blindness transient [Not Recovered/Not Resolved]
  - Recalled product [Unknown]
  - Vision blurred [Not Recovered/Not Resolved]

NARRATIVE: CASE EVENT DATE: 20230101
